FAERS Safety Report 7680626-2 (Version None)
Quarter: 2011Q3

REPORT INFORMATION
  Report Type: 
  Country: None (occurrence: None)
  Receive Date: 20110812
  Receipt Date: 20110801
  Transmission Date: 20111222
  Serious: Yes (Other)
  Sender: FDA-Public Use
  Company Number: US-JNJFOC-20110609047

PATIENT
  Sex: Male

DRUGS (6)
  1. EXTRA STRENGTH TYLENOL PM [Suspect]
     Route: 048
  2. TYLENOL-500 [Suspect]
  3. ACETAMINOPHEN [Suspect]
  4. ACETAMINOPHEN [Suspect]
     Indication: ILL-DEFINED DISORDER
  5. EXTRA STRENGTH TYLENOL PM [Suspect]
     Indication: PRODUCT USED FOR UNKNOWN INDICATION
     Route: 048
  6. TYLENOL-500 [Suspect]
     Indication: ILL-DEFINED DISORDER

REACTIONS (4)
  - BACK PAIN [None]
  - SURGERY [None]
  - MALAISE [None]
  - VOMITING [None]
